FAERS Safety Report 8459948-3 (Version None)
Quarter: 2012Q2

REPORT INFORMATION
  Report Type: 
  Country: None (occurrence: None)
  Receive Date: 20120622
  Receipt Date: 20120620
  Transmission Date: 20120825
  Serious: Yes (Hospitalization, Other)
  Sender: FDA-Public Use
  Company Number: PHEH2006US01255

PATIENT
  Sex: Male
  Weight: 80.725 kg

DRUGS (40)
  1. PROCRIT [Concomitant]
     Dosage: 40000 U, QW
  2. NEURONTIN [Concomitant]
     Dosage: 600 MG, BID
  3. CEFPROZIL [Concomitant]
  4. PROTONIX [Concomitant]
  5. SENNA-MINT WAF [Concomitant]
  6. AZITHROMYCIN [Concomitant]
  7. MYCELEX [Concomitant]
  8. ZOFRAN [Concomitant]
  9. MULTI-VITAMINS [Concomitant]
     Dosage: 1 DF,
     Route: 048
  10. IRON SUPPLEMENTS [Concomitant]
     Dosage: 325 MG, QD
  11. DOCUSATE/SENOKOT-S [Concomitant]
  12. PROMETHAZINE [Concomitant]
  13. COUMADIN [Concomitant]
  14. DEXAMETHASONE [Concomitant]
  15. COMBIVENT [Concomitant]
  16. ARANESP [Concomitant]
  17. GLUCOSAMINE SULFATE W/CHONDROITIN [Concomitant]
     Dosage: 2 DF, TID
     Route: 048
  18. NAPROXEN [Concomitant]
     Dosage: 500 MG, BID
  19. MULTI-VITAMINS [Concomitant]
  20. ASCORBIC ACID [Concomitant]
  21. ACETAMINOPHEN [Concomitant]
     Route: 048
  22. VANCOMYCIN [Concomitant]
  23. FOLIC ACID [Concomitant]
     Dosage: 1 MG, QD
  24. POTASSIUM CHLORIDE [Concomitant]
     Dosage: 20 MEQ, BID
  25. GABAPENTIN [Concomitant]
  26. CHLORHEXIDINE GLUCONATE [Concomitant]
  27. PROCHLORPERAZINE [Concomitant]
  28. PREVACID [Concomitant]
     Dosage: 30 MG, QD
     Route: 048
  29. ZOMETA [Suspect]
     Dosage: 4 MG, QW3
     Dates: start: 20041001
  30. BUMEX [Concomitant]
     Dosage: 1 MG,
  31. OXYCONTIN [Concomitant]
  32. TEMAZEPAM [Concomitant]
  33. KEFLEX [Concomitant]
  34. DICLOXACILLIN [Concomitant]
  35. AREDIA [Suspect]
     Indication: METASTASES TO BONE
     Dates: start: 20020801
  36. PERI-COLACE [Concomitant]
  37. COLACE [Concomitant]
  38. VELCADE [Concomitant]
  39. AUGMENTIN '125' [Concomitant]
     Dosage: 125 MG, ONCE/SINGLE
  40. PERIOGARD [Concomitant]

REACTIONS (84)
  - SINUSITIS [None]
  - FISTULA [None]
  - THROMBOCYTOPENIA [None]
  - ONYCHALGIA [None]
  - INGROWING NAIL [None]
  - DRY MOUTH [None]
  - BONE LESION [None]
  - FALL [None]
  - TOOTHACHE [None]
  - BONE FRAGMENTATION [None]
  - INFLAMMATION [None]
  - SWELLING [None]
  - PULSE PRESSURE DECREASED [None]
  - OSTEOARTHRITIS [None]
  - CONFUSIONAL STATE [None]
  - BLISTER [None]
  - NEURALGIA [None]
  - LOOSE TOOTH [None]
  - WOUND DEHISCENCE [None]
  - MULTIPLE MYELOMA [None]
  - HAIR GROWTH ABNORMAL [None]
  - NAIL DYSTROPHY [None]
  - NAIL HYPERTROPHY [None]
  - CELLULITIS [None]
  - NASAL CONGESTION [None]
  - DYSPHONIA [None]
  - DYSPNOEA EXERTIONAL [None]
  - NAUSEA [None]
  - ASTHENIA [None]
  - LIMB INJURY [None]
  - LYMPHOEDEMA [None]
  - LEUKOPENIA [None]
  - PERIPHERAL VASCULAR DISORDER [None]
  - PROTHROMBIN TIME PROLONGED [None]
  - ANGINA PECTORIS [None]
  - CONSTIPATION [None]
  - OBESITY [None]
  - VISUAL ACUITY REDUCED [None]
  - BUNDLE BRANCH BLOCK RIGHT [None]
  - DENTAL CARIES [None]
  - HIP FRACTURE [None]
  - RIB FRACTURE [None]
  - GINGIVAL DISORDER [None]
  - IMPAIRED HEALING [None]
  - ORAL DISORDER [None]
  - OSTEOLYSIS [None]
  - HYPOAESTHESIA [None]
  - BONE FISTULA [None]
  - DYSPNOEA [None]
  - HEADACHE [None]
  - LARYNGITIS [None]
  - HYPERTENSION [None]
  - OSTEOPOROSIS [None]
  - BONE DISORDER [None]
  - MUCOSAL HAEMORRHAGE [None]
  - ABSCESS JAW [None]
  - FEELING COLD [None]
  - SKIN ULCER [None]
  - SEPSIS [None]
  - OSTEOMYELITIS [None]
  - GAIT DISTURBANCE [None]
  - FLUSHING [None]
  - DISORIENTATION [None]
  - HYPOACUSIS [None]
  - CANDIDIASIS [None]
  - PNEUMONIA [None]
  - PAIN IN JAW [None]
  - BONE EROSION [None]
  - ACTINOMYCOSIS [None]
  - EXOSTOSIS [None]
  - PARAPROTEINAEMIA [None]
  - PYREXIA [None]
  - MENTAL STATUS CHANGES [None]
  - COUGH [None]
  - OEDEMA PERIPHERAL [None]
  - PATHOLOGICAL FRACTURE [None]
  - OSTEONECROSIS OF JAW [None]
  - ONYCHOMYCOSIS [None]
  - NAIL DISCOLOURATION [None]
  - POOR PERIPHERAL CIRCULATION [None]
  - INSOMNIA [None]
  - DIARRHOEA [None]
  - ARTERIOSCLEROSIS [None]
  - BONE LOSS [None]
